FAERS Safety Report 9753784 (Version 1)
Quarter: 2013Q4

REPORT INFORMATION
  Report Type: Spontaneous
  Country: US (occurrence: US)
  Receive Date: 20131213
  Receipt Date: 20131213
  Transmission Date: 20140711
  Serious: No
  Sender: FDA-Public Use
  Company Number: US-GILEAD-2010-0027008

PATIENT
  Sex: Male
  Weight: 73.6 kg

DRUGS (20)
  1. LETAIRIS [Suspect]
     Indication: PULMONARY ARTERIAL HYPERTENSION
     Route: 048
     Dates: start: 20091221, end: 20100209
  2. REVATIO [Suspect]
  3. MICARDIS [Concomitant]
  4. METOPROLOL [Concomitant]
  5. LIPITOR [Concomitant]
  6. LASIX [Concomitant]
  7. ALDACTONE [Concomitant]
  8. FOSAMAX [Concomitant]
  9. FLOMAX [Concomitant]
  10. PROSCAR [Concomitant]
  11. FLONASE [Concomitant]
  12. ADVAIR DISKUS [Concomitant]
  13. DUONEB SOL [Concomitant]
  14. SPIRIVA [Concomitant]
  15. MUCINEX [Concomitant]
  16. PREDNISONE [Concomitant]
  17. EYE VITAMIN [Concomitant]
  18. FISH OIL [Concomitant]
  19. ASA [Concomitant]
  20. GLUCOSAMINE/CHONDROITIN [Concomitant]

REACTIONS (3)
  - Palpitations [Unknown]
  - Dyspnoea [Unknown]
  - Oedema peripheral [Unknown]
